FAERS Safety Report 7433951-4 (Version None)
Quarter: 2011Q2

REPORT INFORMATION
  Report Type: 
  Country: None (occurrence: None)
  Receive Date: 20110425
  Receipt Date: 20110413
  Transmission Date: 20111010
  Serious: Yes (Hospitalization, Other)
  Sender: FDA-Public Use
  Company Number: US-JNJFOC-20110401158

PATIENT
  Sex: Female
  Weight: 72.58 kg

DRUGS (8)
  1. VICODIN [Concomitant]
     Indication: BREAKTHROUGH PAIN
     Dosage: AS NEEDED
     Route: 048
  2. DURAGESIC-100 [Suspect]
     Indication: PAIN
  3. DURAGESIC-100 [Suspect]
  4. SOTALOL [Concomitant]
     Route: 048
  5. FENTANYL-100 [Suspect]
     Indication: PAIN
     Route: 062
  6. OXYCODONE [Suspect]
     Indication: PAIN
     Route: 048
  7. DURAGESIC TRANSDERMAL PATCH [Suspect]
     Indication: PAIN
     Route: 062
  8. SOTALOL [Concomitant]
     Indication: ARRHYTHMIA
     Route: 048

REACTIONS (8)
  - MALAISE [None]
  - CARDIAC FAILURE CONGESTIVE [None]
  - GASTRIC DISORDER [None]
  - ARRHYTHMIA [None]
  - BONE PAIN [None]
  - APPLICATION SITE URTICARIA [None]
  - HEADACHE [None]
  - PRODUCT QUALITY ISSUE [None]
